FAERS Safety Report 7551963-7 (Version None)
Quarter: 2011Q2

REPORT INFORMATION
  Report Type: 
  Country: None (occurrence: None)
  Receive Date: 20110616
  Receipt Date: 20110603
  Transmission Date: 20111010
  Serious: Yes (Other)
  Sender: FDA-Public Use
  Company Number: US-CELGENEUS-163-21880-11011354

PATIENT
  Sex: Male
  Weight: 89.811 kg

DRUGS (12)
  1. METFORMIN HCL [Concomitant]
     Dosage: 500 MILLIGRAM
     Route: 048
  2. MULTI-VITAMIN [Concomitant]
     Indication: ROUTINE HEALTH MAINTENANCE
     Dosage: 1 TABLET
     Route: 048
  3. REVLIMID [Suspect]
     Indication: MULTIPLE MYELOMA
     Dosage: 5 MILLIGRAM
     Route: 048
     Dates: start: 20100501
  4. GLUCOSAMINE CHONDROITIN/MSM [Concomitant]
     Dosage: 1500 MILLIGRAM
     Route: 048
  5. TERAZOSIN HCL [Concomitant]
     Dosage: 5 MILLIGRAM
     Route: 048
  6. LOVAZA [Concomitant]
     Indication: ROUTINE HEALTH MAINTENANCE
     Dosage: 600 MILLIGRAM
     Route: 048
  7. NEXIUM [Concomitant]
     Dosage: 40 MILLIGRAM
     Route: 048
  8. PROSCAR [Concomitant]
     Dosage: 5 MILLIGRAM
     Route: 048
  9. SIMVASTATIN [Concomitant]
     Dosage: 20 MILLIGRAM
     Route: 048
  10. DIOVAN [Concomitant]
     Indication: HYPERTENSION
     Dosage: 80 MILLIGRAM
     Route: 048
  11. HYDROCHLOROTHIAZIDE [Concomitant]
     Indication: HYPERTENSION
     Dosage: 12.5 MILLIGRAM
     Route: 048
  12. VITAMIN B-12 [Concomitant]
     Route: 065

REACTIONS (2)
  - CONTUSION [None]
  - HAEMORRHAGE [None]
